FAERS Safety Report 4636390-4 (Version None)
Quarter: 2005Q2

REPORT INFORMATION
  Report Type: 
  Country: None (occurrence: None)
  Receive Date: 20050413
  Receipt Date: 20050413
  Transmission Date: 20051028
  Serious: Yes (Hospitalization)
  Sender: FDA-Public Use
  Company Number: None

PATIENT
  Sex: Female
  Weight: 77.1 kg

DRUGS (6)
  1. CISPLATIN [Suspect]
     Indication: SMALL CELL LUNG CANCER STAGE UNSPECIFIED
     Dosage: 75 MG/M2 Q 14 DAYS INTRAVENOUS
     Route: 042
     Dates: start: 20050324, end: 20050407
  2. DOCETAXEL 20 MG AVENTIS [Suspect]
     Indication: SMALL CELL LUNG CANCER STAGE UNSPECIFIED
     Dosage: 75 MG/M2 Q 14 DAYS INTRAVENOUS
     Route: 042
     Dates: start: 20050324, end: 20050407
  3. DECADRON [Concomitant]
  4. BENADRYL [Concomitant]
  5. ALOXI [Concomitant]
  6. MAGNESIU [Concomitant]

REACTIONS (3)
  - ANXIETY [None]
  - CHEST PAIN [None]
  - DYSPNOEA [None]
